FAERS Safety Report 13284409 (Version 1)
Quarter: 2017Q1

REPORT INFORMATION
  Report Type: Spontaneous
  Country: US (occurrence: US)
  Receive Date: 20170301
  Receipt Date: 20170301
  Transmission Date: 20170428
  Serious: No
  Sender: FDA-Public Use
  Company Number: US-BRAEBURN PHARMACEUTICALS, INC.-2016BBN00012

PATIENT
  Age: 25 Year
  Sex: Male

DRUGS (1)
  1. PROBUPHINE [Suspect]
     Active Substance: BUPRENORPHINE HYDROCHLORIDE
     Dosage: 8 MG, UNK
     Dates: start: 20161116

REACTIONS (1)
  - Sedation [Unknown]

NARRATIVE: CASE EVENT DATE: 201611
